FAERS Safety Report 19457053 (Version 1)
Quarter: 2021Q2

REPORT INFORMATION
  Report Type: Spontaneous
  Country: PL (occurrence: PL)
  Receive Date: 20210624
  Receipt Date: 20210624
  Transmission Date: 20210717
  Serious: Yes (Other)
  Sender: FDA-Public Use
  Company Number: PL-TEVA-2021-PL-1925298

PATIENT
  Age: 67 Year
  Sex: Male

DRUGS (4)
  1. IRINOTECAN KABI [Suspect]
     Active Substance: IRINOTECAN
     Indication: PANCREATIC CARCINOMA
     Dosage: 401.4MG
     Route: 042
     Dates: start: 20171031, end: 20171031
  2. 5?FLUOROURACIL?EBEWE [Suspect]
     Active Substance: FLUOROURACIL
     Indication: PANCREATIC CARCINOMA
     Dosage: 6244MG
     Route: 042
     Dates: start: 20171031, end: 20171102
  3. CALCII FOLINAS PENTAHYDRICUS [Suspect]
     Active Substance: LEUCOVORIN CALCIUM PENTAHYDRATE
     Indication: PANCREATIC CARCINOMA
     Dosage: 892MG
     Route: 042
     Dates: start: 20171031, end: 20171031
  4. OXALIPLATINUM ACCORD [Suspect]
     Active Substance: OXALIPLATIN
     Indication: PANCREATIC CARCINOMA
     Dosage: 189.5MG
     Route: 042
     Dates: start: 20171031, end: 20171031

REACTIONS (1)
  - Neutropenia [Unknown]

NARRATIVE: CASE EVENT DATE: 20171113
